FAERS Safety Report 4545373-4 (Version None)
Quarter: 2005Q1

REPORT INFORMATION
  Report Type: 
  Country: None (occurrence: None)
  Receive Date: 20050103
  Receipt Date: 20041227
  Transmission Date: 20050727
  Serious: Yes (Hospitalization)
  Sender: FDA-Public Use
  Company Number: THQ2003A00140

PATIENT
  Age: 66 Year
  Sex: Female

DRUGS (2)
  1. LANSOPRAZOLE [Suspect]
     Indication: BARRETT'S OESOPHAGUS
     Dosage: 30 MG PER ORAL
     Route: 048
     Dates: start: 20021001, end: 20021221
  2. RAMIPRIL [Concomitant]

REACTIONS (1)
  - RENAL FAILURE ACUTE [None]
